FAERS Safety Report 5499055-5 (Version None)
Quarter: 2007Q4

REPORT INFORMATION
  Report Type: 
  Country: None (occurrence: None)
  Receive Date: 20071026
  Receipt Date: 20070523
  Transmission Date: 20080405
  Serious: No
  Sender: FDA-Public Use
  Company Number: A0652652A

PATIENT
  Age: 69 Year
  Sex: Female

DRUGS (7)
  1. ADVAIR DISKUS 100/50 [Suspect]
     Indication: EMPHYSEMA
     Dosage: 1PUFF TWICE PER DAY
     Route: 055
     Dates: start: 20070201
  2. ENALAPRIL MALEATE [Concomitant]
  3. TRAMADOL HCL [Concomitant]
  4. SPIRIVA [Concomitant]
  5. PROAIR HFA [Concomitant]
  6. FOSAMAX [Concomitant]
  7. PREDNISONE [Concomitant]

REACTIONS (4)
  - BLOOD PRESSURE INCREASED [None]
  - DYSPHONIA [None]
  - WEIGHT INCREASED [None]
  - WEIGHT LOSS POOR [None]
